FAERS Safety Report 10672417 (Version 1)
Quarter: 2014Q4

REPORT INFORMATION
  Report Type: Spontaneous
  Country: None (occurrence: None)
  Receive Date: 20141222
  Receipt Date: 20141222
  Transmission Date: 20150529
  Serious: Yes (Other)
  Sender: FDA-Public Use
  Company Number: None

PATIENT
  Age: 57 Year
  Sex: Male
  Weight: 83.92 kg

DRUGS (2)
  1. ALENDRONATE 70MG [Suspect]
     Active Substance: ALENDRONATE SODIUM
     Indication: OSTEOPOROSIS
     Dosage: 1 PILL ONCE WEEKLY TAKEN BY MOUTH
     Route: 048
  2. ALENDRONATE 70MG [Suspect]
     Active Substance: ALENDRONATE SODIUM
     Indication: OSTEOPENIA
     Dosage: 1 PILL ONCE WEEKLY TAKEN BY MOUTH
     Route: 048

REACTIONS (2)
  - Spinal compression fracture [None]
  - Cough [None]

NARRATIVE: CASE EVENT DATE: 20141128
